FAERS Safety Report 7151168 (Version 7)
Quarter: 2012Q4

REPORT INFORMATION
  Report Type: Report from Study
  Country: TW (occurrence: TW)
  Receive Date: 20091016
  Receipt Date: 20121024
  Transmission Date: 20130627
  Serious: Yes (Hospitalization)
  Sender: FDA-Public Use
  Company Number: TW-JNJFOC-20090801326

PATIENT
  Age: 65 Year
  Sex: Male
  Weight: 67.3 kg

DRUGS (4)
  1. CNTO 1275 [Suspect]
     Indication: PSORIASIS
     Route: 058
     Dates: start: 20090527
  2. CNTO 1275 [Suspect]
     Indication: PSORIASIS
     Route: 058
     Dates: start: 20090617
  3. PLACEBO [Suspect]
     Indication: PSORIASIS
     Route: 058
     Dates: start: 20090304
  4. PLACEBO [Suspect]
     Indication: PSORIASIS
     Route: 058
     Dates: start: 20090401

REACTIONS (1)
  - Pulmonary tuberculosis [Recovered/Resolved]
